FAERS Safety Report 17376094 (Version 1)
Quarter: 2020Q1

REPORT INFORMATION
  Report Type: Spontaneous
  Country: US (occurrence: US)
  Receive Date: 20200206
  Receipt Date: 20200206
  Transmission Date: 20200409
  Serious: No
  Sender: FDA-Public Use
  Company Number: US-CIPLA LTD.-2019US07568

PATIENT

DRUGS (2)
  1. PHENOBARBITAL. [Concomitant]
     Active Substance: PHENOBARBITAL
     Indication: PRODUCT USED FOR UNKNOWN INDICATION
     Dosage: UNK
     Route: 065
  2. NADOLOL. [Suspect]
     Active Substance: NADOLOL
     Indication: MITRAL VALVE PROLAPSE
     Dosage: 20 MILLIGRAM, QD
     Route: 065

REACTIONS (3)
  - Malaise [Unknown]
  - Product substitution issue [Unknown]
  - Dizziness [Unknown]
